FAERS Safety Report 11654092 (Version 1)
Quarter: 2015Q4

REPORT INFORMATION
  Report Type: Report from Study
  Country: US (occurrence: US)
  Receive Date: 20151023
  Receipt Date: 20151023
  Transmission Date: 20160304
  Serious: Yes (Hospitalization, Other)
  Sender: FDA-Public Use
  Company Number: US-AMGEN-USASL2015110389

PATIENT
  Age: 68 Year
  Sex: Female

DRUGS (1)
  1. ENBREL [Suspect]
     Active Substance: ETANERCEPT
     Indication: RHEUMATOID ARTHRITIS
     Dosage: UNK
     Route: 065
     Dates: start: 2012

REACTIONS (4)
  - Colonoscopy [Unknown]
  - Wheelchair user [Not Recovered/Not Resolved]
  - Herpes zoster [Unknown]
  - Lower limb fracture [Unknown]

NARRATIVE: CASE EVENT DATE: 2015
